FAERS Safety Report 6178313-5 (Version None)
Quarter: 2009Q2

REPORT INFORMATION
  Report Type: 
  Country: None (occurrence: None)
  Receive Date: 20090504
  Receipt Date: 20090504
  Transmission Date: 20091009
  Serious: Yes (Hospitalization)
  Sender: FDA-Public Use
  Company Number: US-B.I. PHARMACEUTICALS,INC./RIDGEFIELD-2009-BP-02618BP

PATIENT
  Age: 68 Year
  Sex: Male

DRUGS (4)
  1. ATROVENT HFA [Suspect]
     Indication: CHRONIC OBSTRUCTIVE PULMONARY DISEASE
     Dosage: 102MCG
     Route: 055
     Dates: start: 20060101
  2. HIGH BLOOD PRESSURE MEDS [Concomitant]
     Indication: HYPERTENSION
     Route: 048
  3. ASPIRIN [Concomitant]
     Indication: ANTICOAGULANT THERAPY
     Route: 048
  4. PLAVIX [Concomitant]
     Indication: ANTICOAGULANT THERAPY
     Route: 048

REACTIONS (4)
  - ABDOMINAL DISCOMFORT [None]
  - CHEST PAIN [None]
  - GASTROINTESTINAL FUNGAL INFECTION [None]
  - NASOPHARYNGITIS [None]
